FAERS Safety Report 17233123 (Version 3)
Quarter: 2020Q1

REPORT INFORMATION
  Report Type: Not Available
  Country: US (occurrence: US)
  Receive Date: 20200104
  Receipt Date: 20200226
  Transmission Date: 20200409
  Serious: Yes (Death, Hospitalization)
  Sender: FDA-Public Use
  Company Number: US-NEUROCRINE BIOSCIENCES INC.-2019NBI04068

PATIENT
  Age: 72 Year
  Sex: Male

DRUGS (2)
  1. INGREZZA [Suspect]
     Active Substance: VALBENAZINE
     Indication: TARDIVE DYSKINESIA
     Route: 048
     Dates: start: 20190828, end: 20190904
  2. INGREZZA [Suspect]
     Active Substance: VALBENAZINE
     Route: 048
     Dates: start: 20190905

REACTIONS (2)
  - Abdominal pain [Unknown]
  - Death [Fatal]

NARRATIVE: CASE EVENT DATE: 20191227
